FAERS Safety Report 4903395-5 (Version None)
Quarter: 2006Q1

REPORT INFORMATION
  Report Type: 
  Country: None (occurrence: None)
  Receive Date: 20060203
  Receipt Date: 20060125
  Transmission Date: 20060701
  Serious: Yes (Hospitalization)
  Sender: FDA-Public Use
  Company Number: 2004106483

PATIENT
  Age: 53 Year
  Sex: Male
  Weight: 65 kg

DRUGS (8)
  1. ALDACTONE [Suspect]
     Indication: ILL-DEFINED DISORDER
     Dosage: ORAL
     Route: 048
  2. ENALAPRIL MALEATE [Suspect]
     Indication: CARDIAC FAILURE CHRONIC
     Dosage: 5 MG (5 MG, DAILY), ORAL
     Route: 048
  3. CARVEDILOL [Suspect]
     Indication: CARDIAC FAILURE CHRONIC
     Dosage: 5 MG (5 MG, DAILY), ORAL
     Route: 048
  4. AMIODARONE HCL [Concomitant]
  5. VERAPAMIL HYDROCHLORIDE [Concomitant]
  6. LASIX [Concomitant]
  7. WARFARIN SODIUM [Concomitant]
  8. PERSANTIN [Concomitant]

REACTIONS (6)
  - ATRIOVENTRICULAR BLOCK COMPLETE [None]
  - CARDIOGENIC SHOCK [None]
  - DRUG INTERACTION [None]
  - HAEMODIALYSIS [None]
  - HYPERKALAEMIA [None]
  - SINUS ARREST [None]
